FAERS Safety Report 7405466-0 (Version None)
Quarter: 2011Q2

REPORT INFORMATION
  Report Type: 
  Country: None (occurrence: None)
  Receive Date: 20110404
  Receipt Date: 20110329
  Transmission Date: 20111010
  Serious: Yes (Other)
  Sender: FDA-Public Use
  Company Number: 2007-153385-NL

PATIENT
  Age: 24 Year
  Sex: Female
  Weight: 48 kg

DRUGS (2)
  1. ZYRTEC [Concomitant]
  2. IMPLANON [Suspect]
     Indication: PRODUCT USED FOR UNKNOWN INDICATION
     Dosage: 1 DF
     Dates: start: 20060105

REACTIONS (5)
  - ADNEXA UTERI PAIN [None]
  - MEDICAL DEVICE COMPLICATION [None]
  - DEVICE DISLOCATION [None]
  - PELVIC PAIN [None]
  - OVARIAN CYST [None]
